FAERS Safety Report 5516321-5 (Version None)
Quarter: 2007Q4

REPORT INFORMATION
  Report Type: 
  Country: None (occurrence: None)
  Receive Date: 20071114
  Receipt Date: 20070129
  Transmission Date: 20080405
  Serious: No
  Sender: FDA-Public Use
  Company Number: A0637142A

PATIENT
  Age: 45 Year
  Sex: Male

DRUGS (2)
  1. COMMIT [Suspect]
  2. NICORETTE [Suspect]

REACTIONS (5)
  - GINGIVAL RECESSION [None]
  - ILL-DEFINED DISORDER [None]
  - INTENTIONAL DRUG MISUSE [None]
  - NAUSEA [None]
  - NERVOUSNESS [None]
